FAERS Safety Report 22699089 (Version 3)
Quarter: 2024Q2

REPORT INFORMATION
  Report Type: Spontaneous
  Country: US (occurrence: US)
  Receive Date: 20230713
  Receipt Date: 20240503
  Transmission Date: 20240716
  Serious: Yes (Life-Threatening, Hospitalization, Other)
  Sender: FDA-Public Use
  Company Number: None

PATIENT
  Age: 22 Year
  Sex: Female

DRUGS (11)
  1. PREDNISOLONE [Suspect]
     Active Substance: PREDNISOLONE
     Indication: Autoimmune hepatitis
     Dosage: UNK (TREATMENT WAS CONTINUED INITIALLY AND STOPPED AFTER NORMALISATION OF LIVER ENZYMES)
     Route: 048
  2. PREDNISOLONE [Suspect]
     Active Substance: PREDNISOLONE
     Dosage: UNK (WEANED TO PHYSIOLOGIC DOSES)
     Route: 065
  3. TACROLIMUS [Suspect]
     Active Substance: TACROLIMUS
     Indication: Autoimmune hepatitis
     Dosage: UNK (TREATMENT WAS CONTINUED INITIALLY AND STOPPED AFTER NORMALISATION OF LIVER ENZYMES )
     Route: 065
  4. MYCOPHENOLATE MOFETIL [Suspect]
     Active Substance: MYCOPHENOLATE MOFETIL
     Indication: Autoimmune hepatitis
     Dosage: UNK (TREATMENT WAS CONTINUED INITIALLY AND STOPPED AFTER NORMALISATION OF LIVER ENZYMES  )
     Route: 065
  5. MYCOPHENOLATE MOFETIL [Suspect]
     Active Substance: MYCOPHENOLATE MOFETIL
     Dosage: UNK (WAS RESTARTED)
     Route: 065
  6. NIVOLUMAB [Suspect]
     Active Substance: NIVOLUMAB
     Indication: Osteosarcoma metastatic
     Dosage: 480 MILLIGRAM (6 DOSES RECEIVED)
     Route: 065
  7. NIVOLUMAB [Suspect]
     Active Substance: NIVOLUMAB
     Indication: Osteosarcoma recurrent
     Dosage: UNK
     Route: 065
  8. EVEROLIMUS [Suspect]
     Active Substance: EVEROLIMUS
     Indication: Autoimmune hepatitis
     Dosage: UNK
     Route: 065
  9. LAPINE T-LYMPHOCYTE IMMUNE GLOBULIN [Suspect]
     Active Substance: LAPINE T-LYMPHOCYTE IMMUNE GLOBULIN
     Indication: Autoimmune hepatitis
     Dosage: UNK
     Route: 065
  10. SOLU-MEDROL [Suspect]
     Active Substance: METHYLPREDNISOLONE SODIUM SUCCINATE
     Indication: Autoimmune hepatitis
     Dosage: UNK (HIGH DOSE) (TREATMENT WAS CONTINUED INITIALLY AND STOPPED AFTER NORMALISATION OF LIVER ENZYMES)
     Route: 042
  11. HYDROCORTISONE [Suspect]
     Active Substance: HYDROCORTISONE
     Indication: Autoimmune hepatitis
     Dosage: UNK (ONE COURSE )
     Route: 042

REACTIONS (6)
  - Drug ineffective [Unknown]
  - Acute respiratory failure [Recovered/Resolved]
  - Pathogen resistance [Recovered/Resolved]
  - Escherichia sepsis [Recovered/Resolved]
  - Septic shock [Recovered/Resolved]
  - Off label use [Unknown]
